FAERS Safety Report 9185987 (Version 1)
Quarter: 2013Q1

REPORT INFORMATION
  Report Type: Spontaneous
  Country: JP (occurrence: JP)
  Receive Date: 20130325
  Receipt Date: 20130325
  Transmission Date: 20140127
  Serious: Yes (Hospitalization)
  Sender: FDA-Public Use
  Company Number: JP-TEVA-391622ISR

PATIENT
  Age: 67 Year
  Sex: Male

DRUGS (12)
  1. PREDNISOLONE [Suspect]
     Indication: ANTI-NEUTROPHIL CYTOPLASMIC ANTIBODY POSITIVE VASCULITIS
     Dosage: 40 MILLIMOL DAILY;
     Route: 048
     Dates: start: 200606
  2. PREDNISOLONE [Suspect]
     Indication: ANTI-NEUTROPHIL CYTOPLASMIC ANTIBODY POSITIVE VASCULITIS
     Dosage: 3 MILLIGRAM DAILY;
     Route: 048
     Dates: start: 200606
  3. PREDNISOLONE [Suspect]
     Indication: ANTI-NEUTROPHIL CYTOPLASMIC ANTIBODY POSITIVE VASCULITIS
     Dosage: 40 MILLIGRAM DAILY;
     Route: 048
     Dates: start: 200804
  4. PREDNISOLONE [Suspect]
     Indication: ANTI-NEUTROPHIL CYTOPLASMIC ANTIBODY POSITIVE VASCULITIS
     Dosage: 30 MILLIGRAM DAILY;
     Route: 048
     Dates: start: 2008
  5. PREDNISOLONE [Suspect]
     Indication: ANTI-NEUTROPHIL CYTOPLASMIC ANTIBODY POSITIVE VASCULITIS
     Dosage: 7.5 MILLIGRAM DAILY;
     Route: 048
     Dates: start: 2008
  6. METHYLPREDNISOLONE [Suspect]
     Indication: ANTI-NEUTROPHIL CYTOPLASMIC ANTIBODY POSITIVE VASCULITIS
     Dosage: 500 MILLIGRAM DAILY; FOR THREE DAYS
     Route: 042
     Dates: start: 200606
  7. METHYLPREDNISOLONE [Suspect]
     Indication: ANTI-NEUTROPHIL CYTOPLASMIC ANTIBODY POSITIVE VASCULITIS
     Dosage: PULSE THERAPY WITH 500MG FOR 3 DAYS
     Route: 042
     Dates: start: 200804
  8. AMPHOTERICIN B [Suspect]
     Indication: MENINGITIS CRYPTOCOCCAL
     Dosage: 180 MILLIGRAM DAILY;
     Route: 042
  9. AMPHOTERICIN B [Suspect]
     Indication: ANTIFUNGAL PROPHYLAXIS
     Dosage: GARGLING WITH A 20X DILUTION (100 MG/ML)
     Route: 050
     Dates: start: 200606
  10. AMPHOTERICIN B [Suspect]
     Indication: ANTIFUNGAL PROPHYLAXIS
     Dosage: GARGLING WITH A 20X DILUTION (100 MG/ML)
     Route: 050
     Dates: start: 200804
  11. COTRIMOXAZOLE [Concomitant]
     Indication: ANTIBIOTIC PROPHYLAXIS
     Dosage: 160MG OF TRIMETHOPRIM AND 800MG OF SULFAMETHOXAZOLE/WEEK
     Route: 048
     Dates: start: 200606
  12. COTRIMOXAZOLE [Concomitant]
     Indication: ANTIBIOTIC PROPHYLAXIS
     Dosage: 160MG OF TRIMETHOPRIM AND 800MG OF SULFAMETHOXAZOLE/WEEK
     Route: 048
     Dates: start: 200804, end: 200806

REACTIONS (3)
  - Nocardiosis [Recovered/Resolved]
  - Meningitis cryptococcal [Recovered/Resolved]
  - Hepatic function abnormal [Unknown]
